FAERS Safety Report 5410393-4 (Version None)
Quarter: 2007Q3

REPORT INFORMATION
  Report Type: 
  Country: None (occurrence: None)
  Receive Date: 20070808
  Receipt Date: 20070731
  Transmission Date: 20080115
  Serious: Yes (Other)
  Sender: FDA-Public Use
  Company Number: 2007SP008004

PATIENT
  Age: 60 Year
  Sex: Female

DRUGS (9)
  1. CELESTONE [Suspect]
     Indication: OSTEOARTHRITIS
     Dosage: 2 ML;ONCE, 1 ML;ONCE
     Dates: start: 20070410, end: 20070410
  2. CELESTONE [Suspect]
     Indication: OSTEOARTHRITIS
     Dosage: 2 ML;ONCE, 1 ML;ONCE
     Dates: start: 20070413, end: 20070413
  3. MINAX [Concomitant]
  4. OGEN [Concomitant]
  5. SEREPAX [Concomitant]
  6. POLARAMINE [Concomitant]
  7. FEBRIDOL [Concomitant]
  8. PANALGESIC [Concomitant]
  9. ACETAMINOPHEN W/ CODEINE [Concomitant]

REACTIONS (31)
  - ABASIA [None]
  - ABDOMINAL DISTENSION [None]
  - ABDOMINAL PAIN [None]
  - AGITATION [None]
  - APHONIA [None]
  - ASTHENIA [None]
  - BACK PAIN [None]
  - CARDIAC DISORDER [None]
  - CHEST DISCOMFORT [None]
  - CONTUSION [None]
  - DYSPNOEA [None]
  - EYE SWELLING [None]
  - FEELING ABNORMAL [None]
  - FEELING HOT [None]
  - FLUID RETENTION [None]
  - FOREIGN BODY TRAUMA [None]
  - GAMMA-GLUTAMYLTRANSFERASE INCREASED [None]
  - HEADACHE [None]
  - MUSCLE SPASMS [None]
  - OEDEMA [None]
  - OEDEMA PERIPHERAL [None]
  - PALLOR [None]
  - PALPITATIONS [None]
  - PARAESTHESIA [None]
  - PERIPHERAL COLDNESS [None]
  - POLLAKIURIA [None]
  - PRURITUS [None]
  - SENSATION OF HEAVINESS [None]
  - SWELLING FACE [None]
  - TREMOR [None]
  - WEIGHT INCREASED [None]
